FAERS Safety Report 8216928-0 (Version None)
Quarter: 2012Q1

REPORT INFORMATION
  Report Type: 
  Country: None (occurrence: None)
  Receive Date: 20120318
  Receipt Date: 20120305
  Transmission Date: 20120608
  Serious: Yes (Hospitalization, Disabling, Other)
  Sender: FDA-Public Use
  Company Number: BR-ROCHE-1038775

PATIENT
  Sex: Female

DRUGS (12)
  1. BUDESONIDE [Suspect]
     Dosage: DOSE REDUCED
  2. BAMIFIX [Concomitant]
     Dosage: REDUCED
  3. SINGULAIR [Concomitant]
     Route: 065
  4. SINGULAIR [Concomitant]
     Dosage: REDUCEED
  5. BAMIFIX [Concomitant]
     Route: 065
  6. BUDESONIDE [Suspect]
     Indication: ASTHMA
     Dosage: 12/400 UG
  7. INDAPEN [Concomitant]
  8. LONAZOLAC CALCIUM [Concomitant]
  9. CORTISONE ACETATE [Concomitant]
  10. XOLAIR [Suspect]
     Indication: PRODUCT USED FOR UNKNOWN INDICATION
     Route: 058
  11. SIMVACOR [Concomitant]
  12. RABEPRAZOLE SODIUM [Concomitant]

REACTIONS (4)
  - FALL [None]
  - FIBROMYALGIA [None]
  - ANKLE FRACTURE [None]
  - PAIN [None]
